FAERS Safety Report 4467909-4 (Version None)
Quarter: 2004Q3

REPORT INFORMATION
  Report Type: 
  Country: None (occurrence: None)
  Receive Date: 20040929
  Receipt Date: 20040921
  Transmission Date: 20050211
  Serious: Yes (Death)
  Sender: FDA-Public Use
  Company Number: 2004-03091

PATIENT
  Age: 72 Year
  Sex: Male

DRUGS (2)
  1. IMMUCYST (BCG - IT  (CONNAUGHT) ), AVENTIS PASTEUR LTD., LOT NOT REP, [Suspect]
     Indication: BLADDER CANCER
     Dosage: IN., BLADDER
  2. OFLOCET [Suspect]
     Dosage: P.O.
     Route: 048

REACTIONS (1)
  - DEATH [None]
